FAERS Safety Report 8664679 (Version 6)
Quarter: 2013Q2

REPORT INFORMATION
  Report Type: Spontaneous
  Country: US (occurrence: US)
  Receive Date: 20120713
  Receipt Date: 20130626
  Transmission Date: 20140414
  Serious: Yes (Other)
  Sender: FDA-Public Use
  Company Number: US-ASTRAZENECA-2012SE46928

PATIENT
  Age: 52 Year
  Sex: Female
  Weight: 82.6 kg

DRUGS (13)
  1. SEROQUEL [Suspect]
     Indication: BIPOLAR DISORDER
     Route: 048
  2. SEROQUEL [Suspect]
     Indication: ANXIETY
     Route: 048
  3. SEROQUEL [Suspect]
     Indication: DEPRESSION
     Route: 048
  4. SEROQUEL [Suspect]
     Indication: BIPOLAR I DISORDER
     Route: 048
  5. SEROQUEL [Suspect]
     Indication: BIPOLAR DISORDER
     Route: 048
     Dates: start: 2010, end: 201204
  6. SEROQUEL [Suspect]
     Indication: ANXIETY
     Route: 048
     Dates: start: 2010, end: 201204
  7. SEROQUEL [Suspect]
     Indication: DEPRESSION
     Route: 048
     Dates: start: 2010, end: 201204
  8. SEROQUEL [Suspect]
     Indication: BIPOLAR I DISORDER
     Route: 048
     Dates: start: 2010, end: 201204
  9. SEROQUEL [Suspect]
     Indication: BIPOLAR DISORDER
     Route: 048
     Dates: start: 201204, end: 20121231
  10. SEROQUEL [Suspect]
     Indication: ANXIETY
     Route: 048
     Dates: start: 201204, end: 20121231
  11. SEROQUEL [Suspect]
     Indication: DEPRESSION
     Route: 048
     Dates: start: 201204, end: 20121231
  12. SEROQUEL [Suspect]
     Indication: BIPOLAR I DISORDER
     Route: 048
     Dates: start: 201204, end: 20121231
  13. ESTRADIOL [Concomitant]
     Dates: start: 201108

REACTIONS (11)
  - Ankle fracture [Unknown]
  - Insomnia [Not Recovered/Not Resolved]
  - Post procedural complication [Unknown]
  - Weight decreased [Not Recovered/Not Resolved]
  - Panic attack [Unknown]
  - Hot flush [Unknown]
  - Somnolence [Recovered/Resolved]
  - Dry mouth [Unknown]
  - Vomiting [Unknown]
  - Drug dose omission [Unknown]
  - Intentional drug misuse [Not Recovered/Not Resolved]
